FAERS Safety Report 20203771 (Version 2)
Quarter: 2021Q4

REPORT INFORMATION
  Report Type: Report from Study
  Country: US (occurrence: US)
  Receive Date: 20211219
  Receipt Date: 20211226
  Transmission Date: 20220303
  Serious: No
  Sender: FDA-Public Use
  Company Number: US-ELI_LILLY_AND_COMPANY-US202112007537

PATIENT
  Age: 11 Year
  Sex: Female

DRUGS (3)
  1. HUMATROPE [Suspect]
     Active Substance: SOMATROPIN
     Indication: Short stature
     Dosage: 2.0 MG, DAILY
     Route: 065
     Dates: start: 20211210
  2. HUMATROPE [Suspect]
     Active Substance: SOMATROPIN
     Dosage: 2.0 MG, DAILY
     Route: 065
     Dates: start: 20211210
  3. HUMATROPE [Suspect]
     Active Substance: SOMATROPIN
     Dosage: 2.0 MG, DAILY
     Route: 065

REACTIONS (3)
  - Overdose [Unknown]
  - Incorrect dose administered [Unknown]
  - Product dose omission issue [Unknown]

NARRATIVE: CASE EVENT DATE: 20211211
